FAERS Safety Report 7389394-5 (Version None)
Quarter: 2011Q2

REPORT INFORMATION
  Report Type: 
  Country: None (occurrence: None)
  Receive Date: 20110401
  Receipt Date: 20110322
  Transmission Date: 20111010
  Serious: Yes (Death)
  Sender: FDA-Public Use
  Company Number: IL-SANOFI-AVENTIS-2011SA017168

PATIENT
  Sex: Female

DRUGS (2)
  1. MULTAQ [Suspect]
     Indication: ATRIAL FLUTTER
     Route: 048
     Dates: start: 20110301
  2. NORMITEN [Concomitant]
     Indication: ATRIAL FLUTTER

REACTIONS (5)
  - BLOOD CREATININE INCREASED [None]
  - OFF LABEL USE [None]
  - ATRIOVENTRICULAR BLOCK COMPLETE [None]
  - HEPATIC FUNCTION ABNORMAL [None]
  - DEATH [None]
